FAERS Safety Report 13686876 (Version 7)
Quarter: 2017Q3

REPORT INFORMATION
  Report Type: Report from Study
  Country: CN (occurrence: CN)
  Receive Date: 20170623
  Receipt Date: 20170912
  Transmission Date: 20171127
  Serious: Yes (Hospitalization)
  Sender: FDA-Public Use
  Company Number: CN-B.I. PHARMACEUTICALS,INC./RIDGEFIELD-2017-BI-034763

PATIENT
  Age: 71 Year
  Sex: Female
  Weight: 47 kg

DRUGS (2)
  1. AFATINIB [Suspect]
     Active Substance: AFATINIB
     Indication: NON-SMALL CELL LUNG CANCER
     Dosage: STRENGTH: 40MG, 30MG, 20MG
     Route: 048
     Dates: start: 20150309, end: 20170615
  2. AFATINIB [Suspect]
     Active Substance: AFATINIB
     Dosage: STRENGTH: 40MG, 30MG, 20MG
     Route: 048
     Dates: start: 20170623, end: 20170710

REACTIONS (2)
  - Gastrointestinal disorder [Recovered/Resolved]
  - Dizziness [Recovered/Resolved]

NARRATIVE: CASE EVENT DATE: 20170605
